FAERS Safety Report 12302047 (Version 5)
Quarter: 2018Q3

REPORT INFORMATION
  Report Type: Spontaneous
  Country: US (occurrence: US)
  Receive Date: 20160425
  Receipt Date: 20180926
  Transmission Date: 20181010
  Serious: No
  Sender: FDA-Public Use
  Company Number: US-PFIZER INC-2016221684

PATIENT
  Age: 48 Year
  Sex: Male
  Weight: 64 kg

DRUGS (4)
  1. SUTENT [Suspect]
     Active Substance: SUNITINIB MALATE
     Dosage: 37.5 MG, DAILY
     Route: 048
  2. SUTENT [Suspect]
     Active Substance: SUNITINIB MALATE
     Dosage: 37.5 MG, CYCLIC (DAILY 1?28 EVERY 42 DAYS)
     Route: 048
  3. SUTENT [Suspect]
     Active Substance: SUNITINIB MALATE
     Dosage: 37.5 MG, CYCLIC (DAY 1?28 Q 42DAYS)
     Route: 048
     Dates: start: 20150318
  4. SUTENT [Suspect]
     Active Substance: SUNITINIB MALATE
     Indication: PANCREATIC CARCINOMA METASTATIC
     Dosage: 37.5 MG, CYCLIC (DAILY 1?28 EVERY 42 DAYS)
     Route: 048
     Dates: start: 20150318

REACTIONS (2)
  - Neoplasm progression [Unknown]
  - Drug dose omission [Unknown]
